FAERS Safety Report 7803137-X (Version None)
Quarter: 2011Q4

REPORT INFORMATION
  Report Type: 
  Country: None (occurrence: None)
  Receive Date: 20111007
  Receipt Date: 20110808
  Transmission Date: 20120403
  Serious: No
  Sender: FDA-Public Use
  Company Number: US-ABBOTT-11P-163-0725010-00

PATIENT
  Sex: Female

DRUGS (8)
  1. KALETRA [Suspect]
     Route: 048
     Dates: end: 20110317
  2. MARIJUANA [Concomitant]
     Indication: PRODUCT USED FOR UNKNOWN INDICATION
     Dosage: USED FROM PRIOR TO THROUGHOUT PREGNANCY
  3. METRONIDAZOLE [Concomitant]
     Indication: PRODUCT USED FOR UNKNOWN INDICATION
  4. RETROVIR [Suspect]
     Indication: ANTIRETROVIRAL THERAPY
     Route: 042
     Dates: start: 20110317, end: 20110317
  5. COMBIVIR [Suspect]
     Indication: ANTIRETROVIRAL THERAPY
     Route: 048
  6. RETROVIR [Suspect]
     Dates: start: 20110317, end: 20110317
  7. KALETRA [Suspect]
     Indication: ANTIRETROVIRAL THERAPY
     Route: 048
     Dates: end: 20110228
  8. TOBACCO [Concomitant]
     Indication: PRODUCT USED FOR UNKNOWN INDICATION
     Dosage: USED FROM PRIOR TO THROUGHOUT PREGNANCY

REACTIONS (1)
  - SEXUALLY TRANSMITTED DISEASE [None]
